FAERS Safety Report 5909364-0 (Version None)
Quarter: 2008Q4

REPORT INFORMATION
  Report Type: 
  Country: None (occurrence: None)
  Receive Date: 20081006
  Receipt Date: 20080930
  Transmission Date: 20090506
  Serious: No
  Sender: FDA-Public Use
  Company Number: US-B.I. PHARMACEUTICALS,INC./RIDGEFIELD-2008-BP-12554BP

PATIENT
  Sex: Female

DRUGS (5)
  1. SPIRIVA [Suspect]
     Indication: CHRONIC OBSTRUCTIVE PULMONARY DISEASE
     Dosage: 18MCG
     Route: 055
     Dates: start: 20080427
  2. ZYRTEC [Concomitant]
     Indication: HYPERSENSITIVITY
     Route: 048
     Dates: start: 19990101
  3. HRT (PRIMARINE) [Concomitant]
     Indication: HORMONE REPLACEMENT THERAPY
     Dosage: 0.45MG 1 DAILY
     Route: 048
     Dates: start: 20010101
  4. SEREVENT DISC [Concomitant]
     Indication: CHRONIC OBSTRUCTIVE PULMONARY DISEASE
     Dosage: 50 MCG 2XDAILY
     Route: 048
     Dates: start: 20010101
  5. MEDROXYPROGESTERONE [Concomitant]
     Dosage: 10MG

REACTIONS (1)
  - VISION BLURRED [None]
